FAERS Safety Report 6159478-8 (Version None)
Quarter: 2009Q2

REPORT INFORMATION
  Report Type: 
  Country: None (occurrence: None)
  Receive Date: 20090420
  Receipt Date: 20070726
  Transmission Date: 20091009
  Serious: Yes (Hospitalization, Other)
  Sender: FDA-Public Use
  Company Number: US-ASTRAZENECA-2007UW05558

PATIENT
  Age: 18348 Day
  Sex: Male
  Weight: 95.7 kg

DRUGS (20)
  1. SEROQUEL [Suspect]
     Indication: DEPRESSION
     Dosage: 25-200 MG
     Route: 048
     Dates: start: 20010101, end: 20031231
  2. NICOTINE [Concomitant]
  3. ACETYLSALICYLIC ACID SRT [Concomitant]
  4. CITALOPRAM HYDROBROMIDE [Concomitant]
  5. GABAPENTIN [Concomitant]
  6. GLIPIZIDE [Concomitant]
  7. HYDROCODONE BITARTRATE [Concomitant]
  8. ISOSORBIDE DINITRATE [Concomitant]
  9. METFORMIN HCL [Concomitant]
  10. METOPROLOL SUCCINATE [Concomitant]
  11. MIRTAZAPINE [Concomitant]
  12. CLOPIDOGREL BISULFATE [Concomitant]
  13. SIMVASTATIN [Concomitant]
  14. SUCRALFATE [Concomitant]
  15. HYDROXYPROPYL METHYLCELLULOSE [Concomitant]
  16. ALBUTEROL [Concomitant]
  17. BISACODYL [Concomitant]
  18. ETODOLAC [Concomitant]
  19. OMEPRAZOLE [Concomitant]
  20. HUMAN INSULIN [Concomitant]

REACTIONS (13)
  - ASTHENIA [None]
  - CHEST PAIN [None]
  - DEPRESSION [None]
  - DYSPHAGIA [None]
  - GASTRITIS [None]
  - GASTROOESOPHAGEAL REFLUX DISEASE [None]
  - HIATUS HERNIA [None]
  - LACRIMATION INCREASED [None]
  - MYOCARDIAL INFARCTION [None]
  - OESOPHAGEAL SPASM [None]
  - PRESBYOPIA [None]
  - SUICIDAL IDEATION [None]
  - TYPE 2 DIABETES MELLITUS [None]
